FAERS Safety Report 12355844 (Version 1)
Quarter: 2016Q2

REPORT INFORMATION
  Report Type: Spontaneous
  Country: AU (occurrence: AU)
  Receive Date: 20160511
  Receipt Date: 20160511
  Transmission Date: 20160815
  Serious: Yes (Other)
  Sender: FDA-Public Use
  Company Number: AU-TEVA-657499ISR

PATIENT
  Sex: Female

DRUGS (1)
  1. COPAXONE [Suspect]
     Active Substance: GLATIRAMER ACETATE
     Indication: RELAPSING-REMITTING MULTIPLE SCLEROSIS
     Route: 058
     Dates: start: 201510

REACTIONS (15)
  - Injection site haemorrhage [Unknown]
  - Compartment syndrome [Unknown]
  - Multiple sclerosis [Unknown]
  - Feeling abnormal [Recovered/Resolved]
  - Gait disturbance [Unknown]
  - Feeling cold [Unknown]
  - Therapy change [Unknown]
  - Injection site swelling [Unknown]
  - Logorrhoea [Recovered/Resolved]
  - Injection site extravasation [Unknown]
  - Muscular weakness [Unknown]
  - Tremor [Unknown]
  - Chills [Unknown]
  - Confusional state [Recovered/Resolved]
  - Mobility decreased [Unknown]
